FAERS Safety Report 7326065-5 (Version None)
Quarter: 2011Q1

REPORT INFORMATION
  Report Type: 
  Country: None (occurrence: None)
  Receive Date: 20110302
  Receipt Date: 20110223
  Transmission Date: 20110831
  Serious: Yes (Death, Other)
  Sender: FDA-Public Use
  Company Number: JP-JNJFOC-20100806552

PATIENT
  Sex: Male

DRUGS (8)
  1. ITRIZOLE [Suspect]
     Indication: PNEUMONIA STAPHYLOCOCCAL
     Route: 041
  2. TPN [Suspect]
     Indication: HYPOPHAGIA
     Route: 041
  3. ZANTAC [Concomitant]
     Indication: GASTRITIS HAEMORRHAGIC
     Route: 042
  4. ITRIZOLE [Suspect]
     Route: 041
  5. ITRIZOLE [Suspect]
     Route: 041
  6. ZOSYN [Suspect]
     Indication: PROPHYLAXIS
     Route: 042
  7. ITRIZOLE [Suspect]
     Indication: LUNG INFECTION PSEUDOMONAL
     Route: 041
  8. POTASSIUM CHLORIDE [Concomitant]
     Indication: HYPOKALAEMIA
     Route: 041

REACTIONS (8)
  - RESPIRATORY FAILURE [None]
  - RENAL IMPAIRMENT [None]
  - BLOOD PRESSURE DECREASED [None]
  - SEPSIS [None]
  - BLOOD LACTATE DEHYDROGENASE INCREASED [None]
  - BLOOD CHLORIDE DECREASED [None]
  - ASPARTATE AMINOTRANSFERASE INCREASED [None]
  - ALANINE AMINOTRANSFERASE INCREASED [None]
